FAERS Safety Report 8859477 (Version 1)
Quarter: 2012Q4

REPORT INFORMATION
  Report Type: Report from Study
  Country: BE (occurrence: BE)
  Receive Date: 20121024
  Receipt Date: 20121024
  Transmission Date: 20130627
  Serious: Yes (Other)
  Sender: FDA-Public Use
  Company Number: BE-ROCHE-1147392

PATIENT
  Age: 89 Year
  Sex: Female
  Weight: 56.8 kg

DRUGS (6)
  1. METHOXY POLYETHYLENE GLYCOL-EPOETIN BETA [Suspect]
     Indication: RENAL FAILURE CHRONIC
     Route: 042
     Dates: start: 20120104, end: 20120201
  2. METHOXY POLYETHYLENE GLYCOL-EPOETIN BETA [Suspect]
     Route: 042
     Dates: start: 20120307, end: 20120411
  3. METHOXY POLYETHYLENE GLYCOL-EPOETIN BETA [Suspect]
     Route: 042
     Dates: start: 20120504
  4. EPREX [Suspect]
     Indication: PRODUCT USED FOR UNKNOWN INDICATION
     Route: 042
     Dates: start: 20120521, end: 20120801
  5. EPREX [Suspect]
     Route: 042
     Dates: start: 20120806, end: 20120905
  6. EPREX [Suspect]
     Route: 042
     Dates: start: 20120910

REACTIONS (2)
  - Septic shock [Recovered/Resolved]
  - Cardiac failure [Recovered/Resolved]
